FAERS Safety Report 9242960 (Version 1)
Quarter: 2013Q2

REPORT INFORMATION
  Report Type: Report from Study
  Country: NL (occurrence: NL)
  Receive Date: 20130419
  Receipt Date: 20130419
  Transmission Date: 20140414
  Serious: Yes (Other)
  Sender: FDA-Public Use
  Company Number: NL-B.I. PHARMACEUTICALS,INC./RIDGEFIELD-2013-NL-00303NL

PATIENT
  Age: 77 Year
  Sex: Female

DRUGS (4)
  1. PRADAXA [Suspect]
     Indication: ATRIAL FIBRILLATION
     Dosage: 220 MG
     Dates: start: 20130314, end: 20130322
  2. METOPROLOL [Concomitant]
     Dosage: 200 MG
  3. TRIAMTEREEN/HYDROCHLOORTHIAZIDE [Concomitant]
     Dosage: 1DD 50/25MG
  4. CLOMIPRAMINE [Concomitant]
     Dosage: 50 MG

REACTIONS (3)
  - Melaena [Not Recovered/Not Resolved]
  - Oesophageal ulcer [Not Recovered/Not Resolved]
  - Gastrooesophageal reflux disease [Not Recovered/Not Resolved]
